FAERS Safety Report 19877365 (Version 1)
Quarter: 2021Q3

REPORT INFORMATION
  Report Type: Spontaneous
  Country: US (occurrence: US)
  Receive Date: 20210924
  Receipt Date: 20210924
  Transmission Date: 20211014
  Serious: No
  Sender: FDA-Public Use
  Company Number: US-ALLERGAN-2117333US

PATIENT
  Sex: Female

DRUGS (3)
  1. VITAMIN B12 [Concomitant]
     Active Substance: CYANOCOBALAMIN
     Indication: PERNICIOUS ANAEMIA
     Dosage: INJECTION, EVERY 3 WEEKS
  2. SUCRALFATE UNK [Suspect]
     Active Substance: SUCRALFATE
     Indication: PERNICIOUS ANAEMIA
  3. ANTACID C [Concomitant]
     Active Substance: MAGNESIUM OXIDE\SODIUM BICARBONATE

REACTIONS (3)
  - Off label use [Unknown]
  - Product physical issue [Unknown]
  - Drug ineffective [Unknown]
